FAERS Safety Report 8984123 (Version 1)
Quarter: 2012Q4

REPORT INFORMATION
  Report Type: Spontaneous
  Country: FR (occurrence: None)
  Receive Date: 20121212
  Receipt Date: 20121212
  Transmission Date: 20130627
  Serious: Yes (Hospitalization)
  Sender: FDA-Public Use
  Company Number: LT2012A00232

PATIENT
  Age: 87 Year
  Sex: Male

DRUGS (9)
  1. ACTOS [Suspect]
     Indication: DIABETES
     Dosage: 30 mg (30 mg, 1-2)  6 mg (2 mg, 3 in 1)
     Route: 048
  2. NOVONORM [Suspect]
     Route: 048
  3. FORLAX (MACROGOL) [Concomitant]
  4. INEXIUM (ESOMEPRAZOLE MAGNESIUM) [Concomitant]
  5. PLAVIX (CLOPIDOGREL BISULFATE) [Concomitant]
  6. PREVISCAN (FLUIDIONE) [Suspect]
  7. SPASFON (PHLOROGLUCINOL) [Concomitant]
  8. TAHOR (ATORVASTATIN CALCIUM) [Concomitant]
  9. TEMERIT (NEBIVOLOL HYDROCHLORIDE) [Concomitant]

REACTIONS (3)
  - Confusional state [None]
  - Agitation [None]
  - Hypoglycaemia [None]
